FAERS Safety Report 5136736-7 (Version None)
Quarter: 2006Q4

REPORT INFORMATION
  Report Type: 
  Country: None (occurrence: None)
  Receive Date: 20061023
  Receipt Date: 20061009
  Transmission Date: 20070319
  Serious: Yes (Hospitalization, Other)
  Sender: FDA-Public Use
  Company Number: 2005BH000066

PATIENT
  Age: 57 Year
  Sex: Female

DRUGS (3)
  1. GENTAMICIN GENERIC             (GENTAMICIN) [Suspect]
     Indication: APPENDICITIS
     Dosage: 4 MG/KG; EVERY DAY; IV
     Route: 042
  2. CEPHALOTHIN [Concomitant]
  3. METRONIDAZOLE            GENERIC [Concomitant]

REACTIONS (9)
  - ANOREXIA [None]
  - ATRIOVENTRICULAR BLOCK FIRST DEGREE [None]
  - BARTTER'S SYNDROME [None]
  - BLOOD PARATHYROID HORMONE DECREASED [None]
  - DEHYDRATION [None]
  - DIZZINESS [None]
  - HYPOACUSIS [None]
  - PARAESTHESIA [None]
  - TETANY [None]
